FAERS Safety Report 9955362 (Version 1)
Quarter: 2014Q1

REPORT INFORMATION
  Report Type: Spontaneous
  Country: US (occurrence: US)
  Receive Date: 20140304
  Receipt Date: 20140304
  Transmission Date: 20141002
  Serious: No
  Sender: FDA-Public Use
  Company Number: US-ABBVIE-13P-163-1078625-00

PATIENT
  Age: 48 Year
  Sex: Female
  Weight: 74.91 kg

DRUGS (7)
  1. HUMIRA PEN [Suspect]
     Indication: PSORIASIS
     Dates: start: 201202, end: 201302
  2. LISINOPRIL HCTZ [Concomitant]
     Indication: HYPERTENSION
  3. PROZAC [Concomitant]
     Indication: ANXIETY
  4. PROZAC [Concomitant]
     Indication: DEPRESSION
  5. FOLIC ACID [Concomitant]
     Indication: VITAMIN SUPPLEMENTATION
  6. VITAMIN D COMPLEX [Concomitant]
     Indication: VITAMIN SUPPLEMENTATION
  7. MULTIVITAMIN [Concomitant]
     Indication: VITAMIN SUPPLEMENTATION

REACTIONS (2)
  - Pruritus [Not Recovered/Not Resolved]
  - Psoriasis [Not Recovered/Not Resolved]
